FAERS Safety Report 8510226-3 (Version None)
Quarter: 2012Q3

REPORT INFORMATION
  Report Type: 
  Country: None (occurrence: None)
  Receive Date: 20120713
  Receipt Date: 20120709
  Transmission Date: 20120928
  Serious: Yes (Death)
  Sender: FDA-Public Use
  Company Number: CA-PFIZER INC-2009278732

PATIENT
  Age: 56 Year
  Sex: Male
  Weight: 109.98 kg

DRUGS (10)
  1. ZIPRASIDONE HCL [Suspect]
     Dosage: 60 MG IN THE AM AND 80 MG IN THE PM
     Route: 048
     Dates: start: 20090306, end: 20090306
  2. ZIPRASIDONE HCL [Suspect]
     Dosage: 80 MG, 2X/DAY
     Route: 048
     Dates: start: 20090307, end: 20091003
  3. LISINOPRIL [Concomitant]
     Indication: HYPERTENSION
     Dosage: 20 MG, 1X/DAY
     Route: 048
     Dates: start: 20060101, end: 20090501
  4. SYNTHROID [Concomitant]
     Indication: HYPOTHYROIDISM
     Dosage: 0.075 MG, UNK
     Route: 048
     Dates: start: 20050301, end: 20090101
  5. ZIPRASIDONE HCL [Suspect]
     Dosage: 40 MG IN THE AM, 60 MG IN THE PM
     Route: 048
     Dates: start: 20090303, end: 20090303
  6. IBUPROFEN [Suspect]
     Dosage: UNK; AS NEEDED
     Route: 048
     Dates: end: 20091003
  7. HYDROCHLOROTHIAZIDE [Concomitant]
     Indication: HYPERTENSION
     Dosage: 25 MG, UNK
     Route: 048
     Dates: start: 20050301, end: 20090501
  8. ZIPRASIDONE HCL [Suspect]
     Indication: SCHIZOPHRENIA
     Dosage: 40 MG, 1X/DAY
     Route: 048
     Dates: start: 20090228, end: 20090228
  9. ZIPRASIDONE HCL [Suspect]
     Dosage: 40 MG, 2X/DAY
     Route: 048
     Dates: start: 20090301, end: 20090302
  10. ZIPRASIDONE HCL [Suspect]
     Dosage: 60 MG, 2X/DAY
     Route: 048
     Dates: start: 20090304, end: 20090305

REACTIONS (1)
  - SEPSIS [None]
